FAERS Safety Report 6906222-X (Version None)
Quarter: 2010Q3

REPORT INFORMATION
  Report Type: 
  Country: None (occurrence: None)
  Receive Date: 20100804
  Receipt Date: 20100730
  Transmission Date: 20110219
  Serious: Yes (Death, Other)
  Sender: FDA-Public Use
  Company Number: PHHY2010JP46397

PATIENT
  Sex: Male
  Weight: 60 kg

DRUGS (13)
  1. TEGRETOL [Suspect]
     Indication: EPILEPSY
     Dosage: 2 DF, QD
     Route: 048
     Dates: start: 20090308, end: 20090317
  2. PHENOBARBITAL TAB [Suspect]
     Indication: EPILEPSY
     Dosage: 3 DF, QD
     Route: 048
     Dates: start: 20090226, end: 20090304
  3. PHENOBARBITAL TAB [Suspect]
     Dosage: UNK
     Route: 048
     Dates: start: 20090306, end: 20090308
  4. LAMICTAL [Suspect]
     Indication: EPILEPSY
     Dosage: 1 DF, QD
     Route: 048
     Dates: start: 20090321, end: 20090402
  5. LAMICTAL [Suspect]
     Dosage: 2 DF, QD
     Route: 048
     Dates: start: 20090403, end: 20090419
  6. LAMICTAL [Suspect]
     Dosage: 3 DF, QD
     Route: 048
     Dates: start: 20090420, end: 20090603
  7. PHENYTOIN SODIUM [Concomitant]
     Indication: EPILEPSY
     Dosage: 300 MG
     Route: 048
     Dates: start: 20090226, end: 20090305
  8. DEPAKENE [Concomitant]
     Indication: EPILEPSY
     Dosage: 1200 MG
     Route: 048
     Dates: start: 20090301
  9. DEPAKENE [Concomitant]
     Dosage: 1200 MG
     Route: 048
  10. DEPAKENE [Concomitant]
     Dosage: 1200 MG
     Route: 048
     Dates: end: 20090612
  11. TOPINASAL [Concomitant]
     Indication: EPILEPSY
     Dosage: 50 MG
     Route: 048
     Dates: start: 20090603
  12. TOPINASAL [Concomitant]
     Dosage: 100 MG
     Route: 048
  13. TOPINASAL [Concomitant]
     Dosage: 200 MG
     Route: 048
     Dates: end: 20090612

REACTIONS (18)
  - ANTICONVULSANT DRUG LEVEL INCREASED [None]
  - BLOOD PRESSURE DECREASED [None]
  - BLOOD UREA INCREASED [None]
  - CONVULSION [None]
  - CYTOMEGALOVIRUS COLITIS [None]
  - DEHYDRATION [None]
  - DRUG ERUPTION [None]
  - DRUG RASH WITH EOSINOPHILIA AND SYSTEMIC SYMPTOMS [None]
  - EOSINOPHIL COUNT INCREASED [None]
  - GENERALISED ERYTHEMA [None]
  - HAEMOGLOBIN DECREASED [None]
  - HEPATIC FUNCTION ABNORMAL [None]
  - LYMPHOCYTE MORPHOLOGY ABNORMAL [None]
  - LYMPHOCYTE STIMULATION TEST POSITIVE [None]
  - MULTI-ORGAN FAILURE [None]
  - PYREXIA [None]
  - RASH [None]
  - SHOCK [None]
